FAERS Safety Report 8956881 (Version 4)
Quarter: 2013Q1

REPORT INFORMATION
  Report Type: Report from Study
  Country: US (occurrence: US)
  Receive Date: 20121210
  Receipt Date: 20130117
  Transmission Date: 20140127
  Serious: Yes (Death, Hospitalization)
  Sender: FDA-Public Use
  Company Number: US-ACTELION-A-NJ2012-75739

PATIENT
  Age: 77 Year
  Sex: Female

DRUGS (3)
  1. TRACLEER [Suspect]
     Indication: PULMONARY HYPERTENSION
     Dosage: UNK
     Route: 048
     Dates: start: 20120517, end: 20121220
  2. COUMADIN [Concomitant]
  3. ASPIRIN [Concomitant]

REACTIONS (6)
  - Right ventricular failure [Fatal]
  - Asthenia [Fatal]
  - Hypotension [Fatal]
  - Oedema peripheral [Fatal]
  - Hyperthyroidism [Not Recovered/Not Resolved]
  - Anxiety [Not Recovered/Not Resolved]
